FAERS Safety Report 7808424-7 (Version None)
Quarter: 2011Q4

REPORT INFORMATION
  Report Type: 
  Country: None (occurrence: None)
  Receive Date: 20111007
  Receipt Date: 20110922
  Transmission Date: 20120403
  Serious: Yes (Hospitalization)
  Sender: FDA-Public Use
  Company Number: DSJ-2011-20708

PATIENT
  Age: 62 Year
  Sex: Male
  Weight: 70 kg

DRUGS (16)
  1. CYANOCOBALAMIN [Suspect]
     Indication: ASTHENOPIA
     Dosage: 3 OR 4 TIMES DAILY, INTRAOCULAR
     Route: 031
     Dates: start: 20101001, end: 20110327
  2. BETAMETHASONE [Suspect]
     Indication: PUSTULAR PSORIASIS
     Dosage: AS NEEDED, TRANSDERMAL
     Route: 062
     Dates: start: 20081024, end: 20110327
  3. BETAMETHASONE [Suspect]
     Indication: PUSTULAR PSORIASIS
     Dosage: AS NEEDED, TRANSDERMAL
     Route: 062
     Dates: start: 20110302, end: 20110327
  4. PHENOBAL (PHENOBARBITAL) (TABLET) (PHENOBARBITAL) [Suspect]
     Indication: EPILEPSY
     Dosage: 90 MG (30 MG, 3 IN 1 D), PER ORAL
     Route: 048
     Dates: start: 20080101, end: 20110327
  5. AMLODIPINE BESYLATE [Suspect]
     Indication: HYPERTENSION
     Dosage: 5 MG (5 MG, 1 IN 1 D), PER ORAL
     Route: 048
     Dates: start: 20081029, end: 20110327
  6. MAG-LAX (MAGNESIUM HYDROXIDE, PARAFFIN, LIQUID) (TABLET) (MAGNESIUM HY [Suspect]
     Indication: CONSTIPATION
     Dosage: 660 MG (330 MG 2 IN 1 D), PER ORAL
     Route: 048
     Dates: start: 20080901, end: 20110327
  7. KETOPROFEN [Suspect]
     Indication: BACK PAIN
     Dosage: AS NEEDED, TRANSDERMAL
     Route: 062
     Dates: start: 20080601, end: 20110327
  8. ISOSORBIDE DINITRATE [Suspect]
     Indication: ANGINA PECTORIS
     Dosage: 40 MG (20 MG, 2 IN 1 D), PER ORAL
     Route: 048
     Dates: start: 20080522, end: 20110327
  9. LIVOSTIN [Suspect]
     Indication: CONJUNCTIVITIS ALLERGIC
     Dosage: 3 OR 4 TIMES DAILY, INTRAOCULAR
     Route: 031
     Dates: start: 20101001, end: 20110327
  10. ZOLOFT [Suspect]
     Indication: DEPRESSION
     Dosage: 50 MG (25 MG, 2 IN 1 D), PER ORAL
     Route: 048
     Dates: start: 20080626, end: 20110327
  11. LYRICA [Suspect]
     Indication: PAIN
     Dosage: 150 MG (75 MG, 2 IN 1 D), PER ORAL
     Route: 048
     Dates: start: 20101025, end: 20110327
  12. LOXOPROFEN SODIUM (LOXOPROFEN SODIUM) (TABLET) (LOXOPROFEN SODIUM) [Suspect]
     Indication: PAIN
     Dosage: AS NEEDED (60 MG), PER ORAL
     Route: 048
     Dates: start: 20090507, end: 20110327
  13. BROTIZOLAM (BROTIZOLAM) (TABLET) (BROTIZOLAM) [Suspect]
     Indication: INSOMNIA
     Dosage: 0.25 MG (0.25 MG, 1 IN 1 D), PER ORAL
     Route: 048
     Dates: start: 20090513, end: 20110327
  14. OLMESARTAN MEDOXOMIL [Suspect]
     Indication: HYPERTENSION
     Dosage: 20 MG (20 MG, 1 IN 1 D), PER ORAL
     Route: 048
     Dates: start: 20080501, end: 20110327
  15. TOLTERODINE TARTRATE [Suspect]
     Indication: HYPERTONIC BLADDER
     Dosage: 4 MG (4 MG, 1 IN 1 D), PER ORAL
     Route: 048
     Dates: start: 20101119, end: 20110326
  16. ALLEGRA [Suspect]
     Indication: PUSTULAR PSORIASIS
     Dosage: 120 MG (60 MG, 2 IN 1 D), PER ORAL
     Route: 048
     Dates: start: 20110302, end: 20110327

REACTIONS (6)
  - CEREBRAL HAEMORRHAGE [None]
  - VOMITING [None]
  - GASTRIC FISTULA [None]
  - REFUSAL OF TREATMENT BY RELATIVE [None]
  - PNEUMONIA ASPIRATION [None]
  - HYDROCEPHALUS [None]
